FAERS Safety Report 18721839 (Version 1)
Quarter: 2021Q1

REPORT INFORMATION
  Report Type: Spontaneous
  Country: US (occurrence: US)
  Receive Date: 20210111
  Receipt Date: 20210111
  Transmission Date: 20210419
  Serious: Yes (Death, Hospitalization, Other)
  Sender: FDA-Public Use
  Company Number: US-AMGEN-USASP2021001544

PATIENT

DRUGS (2)
  1. XGEVA [Suspect]
     Active Substance: DENOSUMAB
     Indication: METASTASES TO BONE
     Dosage: 120 MILLIGRAM
     Route: 065
  2. XGEVA [Suspect]
     Active Substance: DENOSUMAB
     Indication: NEOPLASM

REACTIONS (43)
  - Spinal cord compression [Unknown]
  - Deep vein thrombosis [Unknown]
  - Chronic obstructive pulmonary disease [Unknown]
  - Metastases to central nervous system [Unknown]
  - Hypotension [Unknown]
  - Nausea [Unknown]
  - Urinary retention [Unknown]
  - Pulmonary embolism [Unknown]
  - Pain [Unknown]
  - Abdominal pain [Unknown]
  - Oedema [Unknown]
  - Syncope [Unknown]
  - Fall [Unknown]
  - Constipation [Unknown]
  - Infection [Unknown]
  - Death [Fatal]
  - Lymphoedema [Unknown]
  - Vomiting [Unknown]
  - Asthenia [Unknown]
  - Chest pain [Unknown]
  - Haematuria [Unknown]
  - Hernia [Unknown]
  - Pleural effusion [Unknown]
  - Hyperkalaemia [Unknown]
  - Fatigue [Unknown]
  - Cough [Unknown]
  - Failure to thrive [Unknown]
  - Anaemia [Unknown]
  - Hypocalcaemia [Unknown]
  - Mental status changes [Unknown]
  - Hip fracture [Unknown]
  - Diarrhoea [Unknown]
  - Pyrexia [Unknown]
  - Haemorrhage [Unknown]
  - Tachycardia [Unknown]
  - Acute kidney injury [Unknown]
  - Visual impairment [Unknown]
  - Arthralgia [Unknown]
  - Dyspnoea [Unknown]
  - Pathological fracture [Unknown]
  - Seizure [Unknown]
  - Dehydration [Unknown]
  - Osteonecrosis of jaw [Unknown]
